FAERS Safety Report 23854822 (Version 1)
Quarter: 2024Q2

REPORT INFORMATION
  Report Type: Spontaneous
  Country: CN (occurrence: CN)
  Receive Date: 20240514
  Receipt Date: 20240514
  Transmission Date: 20240715
  Serious: Yes (Hospitalization, Other)
  Sender: FDA-Public Use
  Company Number: CN-PFIZER INC-PV202400062161

PATIENT
  Age: 9 Week
  Sex: Female
  Weight: 5.5 kg

DRUGS (2)
  1. VORICONAZOLE [Suspect]
     Active Substance: VORICONAZOLE
     Indication: Pneumonia
     Dosage: 45 MG, 1X/DAY
     Route: 041
     Dates: start: 20240421, end: 20240423
  2. VORICONAZOLE [Suspect]
     Active Substance: VORICONAZOLE
     Indication: Bronchopulmonary aspergillosis
     Dosage: DOSE OF VORICONAZOLE WAS REDUCED BY 20%
     Route: 041
     Dates: start: 20240424, end: 20240427

REACTIONS (7)
  - Drug-induced liver injury [Recovering/Resolving]
  - Hepatic function abnormal [Recovering/Resolving]
  - Alanine aminotransferase increased [Recovering/Resolving]
  - Aspartate aminotransferase increased [Recovering/Resolving]
  - Bilirubin conjugated increased [Recovering/Resolving]
  - Drug level increased [Unknown]
  - Off label use [Unknown]

NARRATIVE: CASE EVENT DATE: 20240421
